FAERS Safety Report 17809622 (Version 1)
Quarter: 2020Q2

REPORT INFORMATION
  Report Type: Spontaneous
  Country: SG (occurrence: SG)
  Receive Date: 20200520
  Receipt Date: 20200520
  Transmission Date: 20200714
  Serious: Yes (Death)
  Sender: FDA-Public Use
  Company Number: SG-ACTELION-A-US2020-205384

PATIENT
  Age: 14 Day

DRUGS (1)
  1. VENTAVIS [Suspect]
     Active Substance: ILOPROST
     Indication: PULMONARY HYPERTENSION
     Dosage: UNK
     Route: 055
     Dates: start: 20200513

REACTIONS (4)
  - Off label use [Unknown]
  - Death [Fatal]
  - Product administered to patient of inappropriate age [Unknown]
  - Incorrect route of product administration [Unknown]
